FAERS Safety Report 11878349 (Version 1)
Quarter: 2015Q4

REPORT INFORMATION
  Report Type: Spontaneous
  Country: US (occurrence: US)
  Receive Date: 20151230
  Receipt Date: 20151230
  Transmission Date: 20160305
  Serious: No
  Sender: FDA-Public Use
  Company Number: US-HORIZON-RAV-0119-2015

PATIENT
  Age: 8 Year
  Sex: Male

DRUGS (2)
  1. RAVICTI [Suspect]
     Active Substance: GLYCEROL PHENYLBUTYRATE
     Indication: CARBAMOYL PHOSPHATE SYNTHETASE DEFICIENCY
     Dosage: 3.5 ML TWICE DAILY AND 4.0 ML AFTER DINNER, 11 ML IN TOTAL
     Route: 048
     Dates: start: 20140312
  2. CITRULLINE [Concomitant]
     Active Substance: CITRULLINE
     Indication: CARBAMOYL PHOSPHATE SYNTHETASE DEFICIENCY
     Dosage: INITIALLY 4.5 G INCREASED TO 5.0 G DAILY

REACTIONS (1)
  - Amino acid level abnormal [Unknown]

NARRATIVE: CASE EVENT DATE: 201508
